FAERS Safety Report 19856909 (Version 1)
Quarter: 2021Q3

REPORT INFORMATION
  Report Type: Spontaneous
  Country: CA (occurrence: CA)
  Receive Date: 20210920
  Receipt Date: 20210920
  Transmission Date: 20211014
  Serious: Yes (Other)
  Sender: FDA-Public Use
  Company Number: CA-SAMSUNG BIOEPIS-SB-2020-37414

PATIENT
  Age: 54 Year
  Sex: Male

DRUGS (7)
  1. INFLIXIMAB [Suspect]
     Active Substance: INFLIXIMAB
     Indication: CROHN^S DISEASE
     Route: 042
  2. DESOXIMETASONE. [Concomitant]
     Active Substance: DESOXIMETASONE
     Indication: PRODUCT USED FOR UNKNOWN INDICATION
     Route: 065
  3. ENTOCORT [Concomitant]
     Active Substance: BUDESONIDE
     Dosage: UNKNOWN
     Route: 065
  4. INFLIXIMAB [Suspect]
     Active Substance: INFLIXIMAB
     Route: 042
  5. CIPRO [Concomitant]
     Active Substance: CIPROFLOXACIN HYDROCHLORIDE
     Indication: PRODUCT USED FOR UNKNOWN INDICATION
     Dosage: UNKNOWN
     Route: 065
  6. ENTOCORT [Concomitant]
     Active Substance: BUDESONIDE
     Indication: PRODUCT USED FOR UNKNOWN INDICATION
     Dosage: UNKNOWN, CAPSULE, SUSTAINED?RELEASE
     Route: 065
  7. FLAGYL [Concomitant]
     Active Substance: METRONIDAZOLE\METRONIDAZOLE HYDROCHLORIDE
     Indication: PRODUCT USED FOR UNKNOWN INDICATION
     Dosage: UNKNOWN
     Route: 065

REACTIONS (20)
  - Swelling [Not Recovered/Not Resolved]
  - Weight increased [Not Recovered/Not Resolved]
  - Blood pressure increased [Not Recovered/Not Resolved]
  - Therapeutic response shortened [Not Recovered/Not Resolved]
  - Gait disturbance [Not Recovered/Not Resolved]
  - Arthralgia [Not Recovered/Not Resolved]
  - Pain in extremity [Not Recovered/Not Resolved]
  - Intestinal ulcer [Not Recovered/Not Resolved]
  - Stoma site pain [Not Recovered/Not Resolved]
  - Faecal calprotectin abnormal [Not Recovered/Not Resolved]
  - Granuloma [Not Recovered/Not Resolved]
  - Thiopurine methyltransferase decreased [Not Recovered/Not Resolved]
  - Mobility decreased [Not Recovered/Not Resolved]
  - Fatigue [Not Recovered/Not Resolved]
  - Weight decreased [Not Recovered/Not Resolved]
  - Condition aggravated [Not Recovered/Not Resolved]
  - Off label use [Not Recovered/Not Resolved]
  - Blood pressure fluctuation [Not Recovered/Not Resolved]
  - Drug level below therapeutic [Not Recovered/Not Resolved]
  - Intentional product use issue [Not Recovered/Not Resolved]
